FAERS Safety Report 9428144 (Version 1)
Quarter: 2013Q3

REPORT INFORMATION
  Report Type: Spontaneous
  Country: US (occurrence: US)
  Receive Date: 20130730
  Receipt Date: 20130730
  Transmission Date: 20140515
  Serious: No
  Sender: FDA-Public Use
  Company Number: US-ABBOTT-12P-163-1001087-00

PATIENT
  Age: 72 Year
  Sex: Female
  Weight: 68.55 kg

DRUGS (7)
  1. NIASPAN [Suspect]
     Indication: ARTERIOSCLEROSIS
     Dates: start: 20120711, end: 20120904
  2. NIASPAN [Suspect]
     Dates: start: 20120905
  3. L-THYROXINE [Concomitant]
     Indication: THYROID DISORDER
  4. ZETIA [Concomitant]
     Indication: ARTERIOSCLEROSIS
  5. TOPROL [Concomitant]
     Indication: HYPERTENSION
  6. ASPIRIN [Concomitant]
     Indication: CARDIAC DISORDER
  7. LIPITOR [Concomitant]
     Indication: ARTERIOSCLEROSIS

REACTIONS (2)
  - Headache [Not Recovered/Not Resolved]
  - Herpes zoster [Recovered/Resolved]
